FAERS Safety Report 11484578 (Version 1)
Quarter: 2015Q3

REPORT INFORMATION
  Report Type: Spontaneous
  Country: US (occurrence: US)
  Receive Date: 20150903
  Receipt Date: 20150903
  Transmission Date: 20151125
  Serious: No
  Sender: FDA-Public Use
  Company Number: US-ELI_LILLY_AND_COMPANY-US201208003543

PATIENT
  Age: 59 Year
  Sex: Female

DRUGS (2)
  1. CYMBALTA [Suspect]
     Active Substance: DULOXETINE HYDROCHLORIDE
     Dosage: 30 MG, BID
     Dates: end: 20120810
  2. CYMBALTA [Suspect]
     Active Substance: DULOXETINE HYDROCHLORIDE
     Dosage: 30 MG, QD

REACTIONS (8)
  - Disturbance in attention [Unknown]
  - Tremor [Unknown]
  - Anxiety [Unknown]
  - Emotional distress [Unknown]
  - Intentional product misuse [Unknown]
  - Confusional state [Unknown]
  - Fatigue [Unknown]
  - Pain in extremity [Unknown]
